APPROVED DRUG PRODUCT: COLOCORT
Active Ingredient: HYDROCORTISONE
Strength: 100MG/60ML
Dosage Form/Route: ENEMA;RECTAL
Application: A075172 | Product #001 | TE Code: AB
Applicant: CHARTWELL LIFE MOLECULES LLC
Approved: Dec 3, 1999 | RLD: No | RS: No | Type: RX